FAERS Safety Report 25674192 (Version 2)
Quarter: 2025Q3

REPORT INFORMATION
  Report Type: Spontaneous
  Country: GB (occurrence: GB)
  Receive Date: 20250813
  Receipt Date: 20250928
  Transmission Date: 20251020
  Serious: Yes (Other)
  Sender: TEVA
  Company Number: GB-SANDOZ-SDZ2025GB056197

PATIENT
  Age: 69 Year
  Sex: Female
  Weight: 68 kg

DRUGS (1)
  1. AMLODIPINE [Suspect]
     Active Substance: AMLODIPINE BESYLATE
     Indication: Hypertension
     Dosage: 10 MG, 2 DOSE EVERY N/A
     Route: 048
     Dates: start: 2022

REACTIONS (4)
  - Throat irritation [Not Recovered/Not Resolved]
  - Product physical issue [Unknown]
  - Product use complaint [Unknown]
  - Illness [Not Recovered/Not Resolved]
